FAERS Safety Report 5025728-4 (Version None)
Quarter: 2006Q2

REPORT INFORMATION
  Report Type: 
  Country: None (occurrence: None)
  Receive Date: 20060614
  Receipt Date: 20060606
  Transmission Date: 20061013
  Serious: Yes (Hospitalization)
  Sender: FDA-Public Use
  Company Number: NL-BRISTOL-MYERS SQUIBB COMPANY-13402557

PATIENT
  Age: 40 Year
  Sex: Male

DRUGS (7)
  1. ETOPOSIDE [Suspect]
     Indication: GERM CELL CANCER
     Dates: start: 20060528, end: 20060528
  2. CISPLATIN [Suspect]
     Indication: GERM CELL CANCER
     Dates: start: 20060528, end: 20060528
  3. TAXOL [Suspect]
     Indication: GERM CELL CANCER
     Dates: start: 20060524, end: 20060524
  4. BLEOMYCIN SULFATE [Suspect]
     Indication: GERM CELL CANCER
     Dates: start: 20060601, end: 20060601
  5. MAGNESIUM OXIDE [Concomitant]
     Dates: start: 20060529
  6. METOCLOPRAMIDE [Concomitant]
     Dates: start: 20060529
  7. PARACETAMOL [Concomitant]
     Dates: start: 20060501

REACTIONS (1)
  - FEBRILE NEUTROPENIA [None]
